FAERS Safety Report 11492052 (Version 6)
Quarter: 2016Q1

REPORT INFORMATION
  Report Type: Spontaneous
  Country: US (occurrence: US)
  Receive Date: 20150910
  Receipt Date: 20160202
  Transmission Date: 20160525
  Serious: Yes (Death, Hospitalization)
  Sender: FDA-Public Use
  Company Number: US-ACTELION-A-NJ2015-123792

PATIENT
  Age: 74 Year
  Sex: Female

DRUGS (6)
  1. VENTAVIS [Suspect]
     Active Substance: ILOPROST
     Dosage: 2.5 MCG, 6-8X/DAY
     Route: 055
     Dates: start: 20150326
  2. VENTAVIS [Suspect]
     Active Substance: ILOPROST
     Dosage: 5 MCG, 6-9 X/DAY
     Route: 055
     Dates: start: 20150812, end: 2015
  3. COUMADIN [Concomitant]
     Active Substance: WARFARIN SODIUM
  4. OPSUMIT [Suspect]
     Active Substance: MACITENTAN
     Indication: PULMONARY ARTERIAL HYPERTENSION
     Dosage: 10 MG, QD
     Route: 048
     Dates: start: 20150326
  5. VENTAVIS [Suspect]
     Active Substance: ILOPROST
     Indication: PULMONARY ARTERIAL HYPERTENSION
     Dosage: 5 MCG, 6X/DAY
     Route: 055
  6. REVATIO [Concomitant]
     Active Substance: SILDENAFIL CITRATE

REACTIONS (9)
  - Ileostomy [Unknown]
  - Hernia repair [Unknown]
  - Malnutrition [Unknown]
  - Disease progression [Fatal]
  - Mechanical ventilation [Recovered/Resolved]
  - Inguinal hernia [Unknown]
  - Weight decreased [Unknown]
  - Haematoma [Unknown]
  - Malabsorption [Unknown]

NARRATIVE: CASE EVENT DATE: 20151219
